FAERS Safety Report 24551057 (Version 1)
Quarter: 2024Q4

REPORT INFORMATION
  Report Type: Spontaneous
  Country: GB (occurrence: GB)
  Receive Date: 20241025
  Receipt Date: 20241025
  Transmission Date: 20250115
  Serious: Yes (Other)
  Sender: GILEAD
  Company Number: GB-GILEAD-2024-0690750

PATIENT
  Age: 38 Year
  Sex: Male
  Weight: 66 kg

DRUGS (2)
  1. VIREAD [Suspect]
     Active Substance: TENOFOVIR DISOPROXIL FUMARATE
     Indication: Hepatitis B
     Dosage: 245 MG
     Route: 048
     Dates: start: 20240101
  2. BULEVIRTIDE [Suspect]
     Active Substance: BULEVIRTIDE
     Indication: Hepatitis D
     Dosage: 2 MG
     Route: 058
     Dates: start: 20240101

REACTIONS (5)
  - Renal impairment [Not Recovered/Not Resolved]
  - Fatigue [Unknown]
  - Sleep disorder [Unknown]
  - Pruritus [Recovering/Resolving]
  - Injection site mass [Recovering/Resolving]

NARRATIVE: CASE EVENT DATE: 20240101
